FAERS Safety Report 14054782 (Version 1)
Quarter: 2017Q4

REPORT INFORMATION
  Report Type: Spontaneous
  Country: US (occurrence: None)
  Receive Date: 20171006
  Receipt Date: 20171006
  Transmission Date: 20180321
  Serious: Yes (Hospitalization)
  Sender: FDA-Public Use
  Company Number: None

PATIENT
  Age: 15 Year
  Sex: Female
  Weight: 60.7 kg

DRUGS (5)
  1. DEXAMETHASONE. [Suspect]
     Active Substance: DEXAMETHASONE
     Dates: end: 20170918
  2. MERCAPTOPURINE. [Suspect]
     Active Substance: MERCAPTOPURINE
     Dates: end: 20170925
  3. DIFLUCAN [Concomitant]
     Active Substance: FLUCONAZOLE
  4. METHOTREXATE. [Suspect]
     Active Substance: METHOTREXATE
     Dates: end: 20170921
  5. VINCRISTINE SULFATE. [Suspect]
     Active Substance: VINCRISTINE SULFATE
     Dates: end: 20170914

REACTIONS (11)
  - Cholelithiasis [None]
  - Constipation [None]
  - Abdominal pain upper [None]
  - Malaise [None]
  - Vomiting [None]
  - Headache [None]
  - Hyperbilirubinaemia [None]
  - Nausea [None]
  - Epistaxis [None]
  - Alopecia [None]
  - Tachycardia [None]

NARRATIVE: CASE EVENT DATE: 20170926
